FAERS Safety Report 4506335-6 (Version None)
Quarter: 2004Q4

REPORT INFORMATION
  Report Type: 
  Country: None (occurrence: None)
  Receive Date: 20041025
  Receipt Date: 20040113
  Transmission Date: 20050328
  Serious: Yes (Other)
  Sender: FDA-Public Use
  Company Number: US-JNJFOC-20031105217

PATIENT
  Age: 5 Year
  Sex: Female
  Weight: 17 kg

DRUGS (1)
  1. REMICADE [Suspect]
     Indication: JUVENILE ARTHRITIS
     Dosage: 120 MG, INTRAVENOUS; FIRST THREE INFUSIONS AT 60 MG
     Route: 042
     Dates: start: 20031124

REACTIONS (7)
  - ANXIETY [None]
  - DYSPNOEA [None]
  - EYE ROLLING [None]
  - HYPOTONIA [None]
  - INFUSION RELATED REACTION [None]
  - TACHYCARDIA [None]
  - VOMITING [None]
